FAERS Safety Report 7753984-8 (Version None)
Quarter: 2011Q3

REPORT INFORMATION
  Report Type: 
  Country: None (occurrence: None)
  Receive Date: 20110915
  Receipt Date: 20110906
  Transmission Date: 20111222
  Serious: Yes (Death, Hospitalization, Other)
  Sender: FDA-Public Use
  Company Number: US-ACTELION-A-NJ2010-37970

PATIENT

DRUGS (4)
  1. COUMADIN [Concomitant]
  2. REVATIO [Concomitant]
  3. TRACLEER [Suspect]
     Indication: PULMONARY ARTERIAL HYPERTENSION
     Dosage: UNK
     Route: 048
     Dates: start: 20100305
  4. CALCIUM CHANNEL BLOCKERS [Concomitant]

REACTIONS (5)
  - DEATH [None]
  - COAGULATION TIME PROLONGED [None]
  - CHEMOTHERAPY [None]
  - B-CELL LYMPHOMA [None]
  - PLEURAL EFFUSION [None]
